FAERS Safety Report 11102209 (Version 1)
Quarter: 2015Q2

REPORT INFORMATION
  Report Type: Spontaneous
  Country: DE (occurrence: DE)
  Receive Date: 20150511
  Receipt Date: 20150511
  Transmission Date: 20150821
  Serious: Yes (Other)
  Sender: FDA-Public Use
  Company Number: DE-ALKEM-000996

PATIENT
  Age: 41 Year
  Sex: Male

DRUGS (2)
  1. INSULIN GLARGINE [Concomitant]
     Active Substance: INSULIN GLARGINE
     Indication: TYPE 2 DIABETES MELLITUS
  2. METFORMIN [Suspect]
     Active Substance: METFORMIN HYDROCHLORIDE
     Indication: TYPE 2 DIABETES MELLITUS

REACTIONS (5)
  - Hepatitis [Recovered/Resolved]
  - Rash [Recovered/Resolved]
  - Hepatic steatosis [Unknown]
  - Pruritus [Recovered/Resolved]
  - Eosinophilia [Recovering/Resolving]
